FAERS Safety Report 5447471-X (Version None)
Quarter: 2007Q3

REPORT INFORMATION
  Report Type: 
  Country: None (occurrence: None)
  Receive Date: 20070910
  Receipt Date: 20070831
  Transmission Date: 20080115
  Serious: Yes (Hospitalization)
  Sender: FDA-Public Use
  Company Number: A0624968C

PATIENT
  Age: 52 Year
  Sex: Male
  Weight: 92.7 kg

DRUGS (7)
  1. ROSIGLITAZONE [Suspect]
     Route: 048
     Dates: start: 20060830
  2. PLAVIX [Concomitant]
     Dosage: 75MG PER DAY
     Route: 048
  3. ASPIRIN [Concomitant]
     Dosage: 81MG PER DAY
     Route: 048
  4. RAMIPRIL [Concomitant]
     Dosage: 10MG PER DAY
     Route: 048
  5. METFORMIN HCL [Concomitant]
     Dosage: 500MG TWICE PER DAY
     Route: 048
  6. NEXIUM [Concomitant]
     Dosage: 40MG PER DAY
     Route: 048
  7. LIPITOR [Concomitant]
     Dosage: 80MG PER DAY
     Route: 048
     Dates: end: 20070626

REACTIONS (3)
  - ARTERIAL RESTENOSIS [None]
  - ISCHAEMIA [None]
  - PAIN [None]
